FAERS Safety Report 5142953-2 (Version None)
Quarter: 2006Q4

REPORT INFORMATION
  Report Type: 
  Country: None (occurrence: None)
  Receive Date: 20061030
  Receipt Date: 20061018
  Transmission Date: 20070319
  Serious: Yes (Hospitalization, Other)
  Sender: FDA-Public Use
  Company Number: TUK2006A00072

PATIENT
  Age: 58 Year
  Sex: Male

DRUGS (8)
  1. ACTOS [Suspect]
  2. GLICLAZIDE (GLICLAZIDE) [Concomitant]
  3. TERAZOSIN HCL [Concomitant]
  4. CITALOPRAM HYDROBROMIDE [Concomitant]
  5. SIMVASTATIN [Concomitant]
  6. CLOPIDOGREL [Concomitant]
  7. CANDESARTAN (CANDESARTAN) [Concomitant]
  8. NIFEDIPINE [Concomitant]

REACTIONS (7)
  - CARDIAC FAILURE [None]
  - CARDIOMEGALY [None]
  - DILATATION VENTRICULAR [None]
  - OEDEMA PERIPHERAL [None]
  - SCROTAL OEDEMA [None]
  - THERAPY NON-RESPONDER [None]
  - VENTRICULAR DYSFUNCTION [None]
